FAERS Safety Report 10654526 (Version 1)
Quarter: 2014Q4

REPORT INFORMATION
  Report Type: Spontaneous
  Country: FR (occurrence: FR)
  Receive Date: 20141216
  Receipt Date: 20141216
  Transmission Date: 20150529
  Serious: Yes (Congenital Anomaly)
  Sender: FDA-Public Use
  Company Number: FR-BAYER-2014-182466

PATIENT
  Sex: Female
  Weight: 2.01 kg

DRUGS (1)
  1. ADALAT [Suspect]
     Active Substance: NIFEDIPINE
     Dosage: UNK
     Route: 064

REACTIONS (2)
  - Low birth weight baby [None]
  - Cardiac murmur [None]
